FAERS Safety Report 25300804 (Version 1)
Quarter: 2025Q2

REPORT INFORMATION
  Report Type: Spontaneous
  Country: US (occurrence: None)
  Receive Date: 20250509
  Receipt Date: 20250509
  Transmission Date: 20250717
  Serious: Yes (Other)
  Sender: FDA-CTU
  Company Number: None

PATIENT

DRUGS (2)
  1. SEMAGLUTIDE [Suspect]
     Active Substance: SEMAGLUTIDE
     Indication: Weight control
  2. PROPYLENE GLYCOL [Concomitant]
     Active Substance: PROPYLENE GLYCOL

REACTIONS (5)
  - Treatment delayed [None]
  - Inadequate aseptic technique in use of product [None]
  - Physical product label issue [None]
  - Suspected counterfeit product [None]
  - Off label use [None]

NARRATIVE: CASE EVENT DATE: 20250418
